FAERS Safety Report 13155012 (Version 1)
Quarter: 2017Q1

REPORT INFORMATION
  Report Type: Spontaneous
  Country: US (occurrence: US)
  Receive Date: 20170126
  Receipt Date: 20170126
  Transmission Date: 20170428
  Serious: Yes (Hospitalization, Other)
  Sender: FDA-Public Use
  Company Number: US-PFIZER INC-2017035042

PATIENT

DRUGS (4)
  1. ENTRESTO [Interacting]
     Active Substance: SACUBITRIL\VALSARTAN
  2. RAMIPRIL. [Suspect]
     Active Substance: RAMIPRIL
     Dosage: UNK
     Route: 048
  3. ZESTRIL [Interacting]
     Active Substance: LISINOPRIL
     Dosage: UNK
     Route: 048
  4. ATACAND [Interacting]
     Active Substance: CANDESARTAN CILEXETIL
     Dosage: UNK
     Route: 048

REACTIONS (5)
  - Drug interaction [Unknown]
  - Acute kidney injury [Unknown]
  - Angioedema [Unknown]
  - Hypotension [Unknown]
  - Hyperkalaemia [Unknown]
